FAERS Safety Report 5919213-2 (Version None)
Quarter: 2008Q4

REPORT INFORMATION
  Report Type: 
  Country: None (occurrence: None)
  Receive Date: 20081014
  Receipt Date: 20081014
  Transmission Date: 20090506
  Serious: Yes (Other)
  Sender: FDA-Public Use
  Company Number: None

PATIENT
  Age: 7 Year
  Sex: Male
  Weight: 23.587 kg

DRUGS (2)
  1. SINGULAIR [Suspect]
     Indication: ASTHMA
     Dosage: CHEWABLE TABLET NIGHTLY AT BEDTIME
  2. SINGULAIR [Suspect]
     Indication: RHINITIS ALLERGIC
     Dosage: CHEWABLE TABLET NIGHTLY AT BEDTIME

REACTIONS (10)
  - AGGRESSION [None]
  - ANOREXIA [None]
  - DISTURBANCE IN ATTENTION [None]
  - EDUCATIONAL PROBLEM [None]
  - FIGHT IN SCHOOL [None]
  - HALLUCINATION [None]
  - IRRITABILITY [None]
  - NIGHTMARE [None]
  - THIRST [None]
  - WEIGHT DECREASED [None]
